FAERS Safety Report 7822827-6 (Version None)
Quarter: 2011Q4

REPORT INFORMATION
  Report Type: 
  Country: None (occurrence: None)
  Receive Date: 20111018
  Receipt Date: 20110401
  Transmission Date: 20120403
  Serious: No
  Sender: FDA-Public Use
  Company Number: US-ASTRAZENECA-2011SE18987

PATIENT
  Sex: Female

DRUGS (2)
  1. SYMBICORT [Suspect]
     Dosage: 160/4.5UG, 2PUFFS OR 3PUFFS PER DAY
     Route: 055
  2. SYMBICORT [Suspect]
     Dosage: 160/4.5UG, 2PUFFS 2XDAY
     Route: 055

REACTIONS (4)
  - INAPPROPRIATE SCHEDULE OF DRUG ADMINISTRATION [None]
  - HYPERSENSITIVITY [None]
  - CHEST DISCOMFORT [None]
  - WEIGHT INCREASED [None]
